FAERS Safety Report 15600720 (Version 5)
Quarter: 2019Q1

REPORT INFORMATION
  Report Type: Spontaneous
  Country: GB (occurrence: GB)
  Receive Date: 20181109
  Receipt Date: 20190130
  Transmission Date: 20190417
  Serious: Yes (Other)
  Sender: FDA-Public Use
  Company Number: GB-009507513-1811GBR001360

PATIENT
  Sex: Female

DRUGS (1)
  1. NEXPLANON [Suspect]
     Active Substance: ETONOGESTREL
     Dosage: 1 IMPLANT
     Route: 059
     Dates: start: 20180924, end: 20181031

REACTIONS (9)
  - Implant site pustules [Unknown]
  - Syncope [Recovered/Resolved]
  - Malaise [Unknown]
  - Implant site erythema [Unknown]
  - Device difficult to use [Recovered/Resolved]
  - Implant site infection [Recovered/Resolved]
  - Pain in extremity [Unknown]
  - Implant site pain [Unknown]
  - Implant site inflammation [Unknown]

NARRATIVE: CASE EVENT DATE: 2018
